FAERS Safety Report 13637765 (Version 3)
Quarter: 2018Q4

REPORT INFORMATION
  Report Type: Spontaneous
  Country: US (occurrence: US)
  Receive Date: 20170609
  Receipt Date: 20181129
  Transmission Date: 20190204
  Serious: Yes (Other)
  Sender: FDA-Public Use
  Company Number: US-PFIZER INC-2017252515

PATIENT
  Age: 64 Year
  Sex: Female

DRUGS (2)
  1. LYRICA [Suspect]
     Active Substance: PREGABALIN
     Dosage: 150 MG, 4X/DAY, (TAKE 1 CAPSULE BY MOUTH 4 TIMES DAILY)
     Route: 048
     Dates: start: 2018, end: 2018
  2. LYRICA [Suspect]
     Active Substance: PREGABALIN
     Dosage: 150 MG, UNK
     Dates: start: 20180618, end: 2018

REACTIONS (4)
  - Pain in extremity [Unknown]
  - Pain [Unknown]
  - Neoplasm malignant [Unknown]
  - Product use issue [Unknown]

NARRATIVE: CASE EVENT DATE: 2018
